FAERS Safety Report 4413837-X (Version None)
Quarter: 2004Q3

REPORT INFORMATION
  Report Type: 
  Country: None (occurrence: None)
  Receive Date: 20040803
  Receipt Date: 20030504
  Transmission Date: 20050211
  Serious: Yes (Hospitalization)
  Sender: FDA-Public Use
  Company Number: 200314212US

PATIENT
  Sex: Male
  Weight: 94.5 kg

DRUGS (13)
  1. ARAVA [Suspect]
     Indication: ARTHRITIS
     Route: 048
     Dates: start: 20030225, end: 20030502
  2. PROCRIT [Concomitant]
  3. PREDNISONE [Concomitant]
  4. VIOXX [Concomitant]
     Dates: end: 20030502
  5. CALCIUM CARBONATE [Concomitant]
  6. MULTIVITAMIN [Concomitant]
  7. LIPITOR [Concomitant]
     Dates: end: 20030101
  8. METHOTREXATE [Concomitant]
  9. TYLENOL W/ CODEINE NO. 3 [Concomitant]
  10. TYLENOL [Concomitant]
  11. MAGNESIUM OXIDE [Concomitant]
  12. ZESTRIL [Concomitant]
  13. PROTONIX [Concomitant]

REACTIONS (20)
  - ASPARTATE AMINOTRANSFERASE INCREASED [None]
  - ATELECTASIS [None]
  - AZOTAEMIA [None]
  - BLOOD ALKALINE PHOSPHATASE INCREASED [None]
  - BLOOD CREATINE PHOSPHOKINASE INCREASED [None]
  - BLOOD UREA INCREASED [None]
  - CARDIAC FAILURE CONGESTIVE [None]
  - CARDIAC TAMPONADE [None]
  - CARDIOMEGALY [None]
  - DEHYDRATION [None]
  - HEPATIC ENZYME INCREASED [None]
  - IMMUNOLOGY TEST ABNORMAL [None]
  - LIVER FUNCTION TEST ABNORMAL [None]
  - LUNG INFILTRATION [None]
  - PANCYTOPENIA [None]
  - PARVOVIRUS B19 SEROLOGY POSITIVE [None]
  - PERICARDIAL EFFUSION [None]
  - RASH ERYTHEMATOUS [None]
  - RASH MACULAR [None]
  - SKIN ULCER [None]
